FAERS Safety Report 9457428 (Version 1)
Quarter: 2013Q3

REPORT INFORMATION
  Report Type: Spontaneous
  Country: US (occurrence: None)
  Receive Date: 20130812
  Receipt Date: 20130812
  Transmission Date: 20140515
  Serious: Yes (Other)
  Sender: FDA-Public Use
  Company Number: None

PATIENT
  Age: 75 Year
  Sex: Male
  Weight: 68.04 kg

DRUGS (1)
  1. CYBYLATA [Suspect]
     Indication: NEURALGIA
     Dosage: 30 BID THEN 60 BID  TWICE DAILY  TAKEN BY MOUTH
     Route: 048
     Dates: start: 20130716, end: 20130730

REACTIONS (5)
  - Dissociative fugue [None]
  - Hypersomnia [None]
  - Depression [None]
  - Asthenia [None]
  - Asthenia [None]
